FAERS Safety Report 21994577 (Version 1)
Quarter: 2023Q1

REPORT INFORMATION
  Report Type: Spontaneous
  Country: US (occurrence: None)
  Receive Date: 20230213
  Receipt Date: 20230213
  Transmission Date: 20230417
  Serious: Yes (Hospitalization)
  Sender: FDA-Public Use
  Company Number: None

PATIENT
  Age: 72 Year
  Sex: Male

DRUGS (18)
  1. PIRFENIDONE [Suspect]
     Active Substance: PIRFENIDONE
     Indication: Interstitial lung disease
     Dosage: FREQUENCY : 3 TIMES A DAY;?
     Route: 048
     Dates: start: 20201201, end: 20230131
  2. ATROVENT [Concomitant]
     Active Substance: IPRATROPIUM BROMIDE
  3. BENZONATATE [Concomitant]
     Active Substance: BENZONATATE
  4. PERCOCET [Concomitant]
     Active Substance: ACETAMINOPHEN\OXYCODONE HYDROCHLORIDE
  5. ATORVASTATIN [Concomitant]
     Active Substance: ATORVASTATIN
  6. COMBIVENT RESPIMAT [Concomitant]
     Active Substance: ALBUTEROL SULFATE\IPRATROPIUM BROMIDE
  7. PREDNISONE [Concomitant]
     Active Substance: PREDNISONE
  8. LISINOPRIL [Concomitant]
     Active Substance: LISINOPRIL
  9. PRASUGREL [Concomitant]
     Active Substance: PRASUGREL
  10. CARVEDILOL [Concomitant]
     Active Substance: CARVEDILOL
  11. JARDIANCE [Concomitant]
     Active Substance: EMPAGLIFLOZIN
  12. FAMOTIDINE [Concomitant]
     Active Substance: FAMOTIDINE
  13. ZOLPIDEM [Concomitant]
     Active Substance: ZOLPIDEM TARTRATE
  14. GLIPIZIDE [Concomitant]
     Active Substance: GLIPIZIDE
  15. NITROGLYCERIN [Concomitant]
     Active Substance: NITROGLYCERIN
  16. ALBUTEROL SULFATE [Concomitant]
     Active Substance: ALBUTEROL SULFATE
  17. Diclofenac top gel [Concomitant]
  18. FLONASE [Concomitant]
     Active Substance: FLUTICASONE PROPIONATE

REACTIONS (5)
  - Cardiac failure congestive [None]
  - Staphylococcal bacteraemia [None]
  - Pneumothorax [None]
  - Multiple organ dysfunction syndrome [None]
  - Post procedural complication [None]

NARRATIVE: CASE EVENT DATE: 20230101
